FAERS Safety Report 6839487-3 (Version None)
Quarter: 2010Q3

REPORT INFORMATION
  Report Type: 
  Country: None (occurrence: None)
  Receive Date: 20100714
  Receipt Date: 20090914
  Transmission Date: 20110219
  Serious: No
  Sender: FDA-Public Use
  Company Number: A0803290A

PATIENT
  Sex: Female

DRUGS (4)
  1. FLOVENT [Suspect]
     Indication: EMPHYSEMA
     Dosage: 2PUFF TWICE PER DAY
     Route: 055
  2. SPIRIVA [Concomitant]
  3. FORTICAL [Concomitant]
  4. XALATAN [Concomitant]

REACTIONS (2)
  - CONTUSION [None]
  - RASH MACULAR [None]
